FAERS Safety Report 7686478-9 (Version None)
Quarter: 2011Q3

REPORT INFORMATION
  Report Type: 
  Country: None (occurrence: None)
  Receive Date: 20110816
  Receipt Date: 20110805
  Transmission Date: 20111222
  Serious: Yes (Hospitalization, Other)
  Sender: FDA-Public Use
  Company Number: US-CELGENEUS-AX242-10-0660

PATIENT
  Age: 63 Year
  Sex: Female
  Weight: 89.2 kg

DRUGS (5)
  1. ABRAXANE [Suspect]
     Dosage: 232 MILLIGRAM
     Route: 041
     Dates: start: 20101111, end: 20101118
  2. GEMCITABINE [Suspect]
     Dosage: 3720 MILLIGRAM
     Route: 065
     Dates: start: 20100304
  3. ABRAXANE [Suspect]
     Dosage: 232 MILLIGRAM
     Route: 041
     Dates: start: 20100304
  4. BEVACIZUMAB [Suspect]
     Dosage: 1368 MILLIGRAM
     Route: 065
     Dates: start: 20100304, end: 20101021
  5. GEMCITABINE [Suspect]
     Dates: start: 20101111, end: 20101118

REACTIONS (12)
  - MYALGIA [None]
  - HAEMOGLOBIN DECREASED [None]
  - DIARRHOEA [None]
  - MUSCULAR WEAKNESS [None]
  - PLATELET COUNT DECREASED [None]
  - HYPOCALCAEMIA [None]
  - DYSPNOEA [None]
  - PROTEINURIA [None]
  - FATIGUE [None]
  - RENAL FAILURE [None]
  - NEUTROPENIA [None]
  - WHITE BLOOD CELL COUNT DECREASED [None]
